FAERS Safety Report 7591286-3 (Version None)
Quarter: 2011Q3

REPORT INFORMATION
  Report Type: 
  Country: None (occurrence: None)
  Receive Date: 20110706
  Receipt Date: 20110627
  Transmission Date: 20111222
  Serious: No
  Sender: FDA-Public Use
  Company Number: US-BIOGENIDEC-2011BI023469

PATIENT
  Sex: Female

DRUGS (1)
  1. TYSABRI [Suspect]
     Indication: MULTIPLE SCLEROSIS
     Route: 042
     Dates: start: 20110215

REACTIONS (15)
  - PAIN IN EXTREMITY [None]
  - BACK DISORDER [None]
  - POOR VENOUS ACCESS [None]
  - FALL [None]
  - VEIN DISORDER [None]
  - SOMNOLENCE [None]
  - DEPRESSION [None]
  - FATIGUE [None]
  - RASH [None]
  - LIP INJURY [None]
  - DRUG INEFFECTIVE [None]
  - ASTHENIA [None]
  - INFUSION SITE PAIN [None]
  - BACK PAIN [None]
  - CONTUSION [None]
